FAERS Safety Report 23006138 (Version 2)
Quarter: 2023Q4

REPORT INFORMATION
  Report Type: Spontaneous
  Country: US (occurrence: US)
  Receive Date: 20230929
  Receipt Date: 20231004
  Transmission Date: 20240110
  Serious: Yes (Hospitalization, Other)
  Sender: FDA-Public Use
  Company Number: US-ABBVIE-5426859

PATIENT
  Sex: Male

DRUGS (2)
  1. RINVOQ [Suspect]
     Active Substance: UPADACITINIB
     Indication: Product used for unknown indication
     Route: 048
  2. DUPILUMAB [Suspect]
     Active Substance: DUPILUMAB
     Indication: Product used for unknown indication
     Route: 065

REACTIONS (8)
  - Medical device implantation [Not Recovered/Not Resolved]
  - T-cell prolymphocytic leukaemia [Unknown]
  - Dermatitis exfoliative generalised [Unknown]
  - Dermatitis atopic [Recovering/Resolving]
  - Immunology test abnormal [Unknown]
  - Therapeutic product effect incomplete [Unknown]
  - Blood immunoglobulin E abnormal [Unknown]
  - Impaired healing [Not Recovered/Not Resolved]
